FAERS Safety Report 24661419 (Version 2)
Quarter: 2024Q4

REPORT INFORMATION
  Report Type: Spontaneous
  Country: IN (occurrence: IN)
  Receive Date: 20241125
  Receipt Date: 20241202
  Transmission Date: 20250115
  Serious: Yes (Death, Hospitalization)
  Sender: PFIZER
  Company Number: IN-PFIZER INC-PV202400134751

PATIENT
  Age: 74 Year
  Sex: Male

DRUGS (1)
  1. LORLATINIB [Suspect]
     Active Substance: LORLATINIB
     Dosage: 100 MG, 1X/DAY
     Route: 048

REACTIONS (4)
  - Loss of consciousness [Fatal]
  - Head injury [Fatal]
  - Fall [Fatal]
  - Malaise [Unknown]
